FAERS Safety Report 19498554 (Version 23)
Quarter: 2023Q1

REPORT INFORMATION
  Report Type: Report from Study
  Country: CA (occurrence: CA)
  Receive Date: 20210706
  Receipt Date: 20230331
  Transmission Date: 20230417
  Serious: Yes (Life-Threatening, Hospitalization, Other)
  Sender: FDA-Public Use
  Company Number: NVSC2020CA262414

PATIENT
  Age: 37 Year
  Sex: Female
  Weight: 110 kg

DRUGS (20)
  1. XOLAIR [Suspect]
     Active Substance: OMALIZUMAB
     Indication: Chronic spontaneous urticaria
     Dosage: 300 MG, EVERY 4 WEEKS
     Route: 058
     Dates: start: 20200820
  2. XOLAIR [Suspect]
     Active Substance: OMALIZUMAB
     Dosage: 300 MG, EVERY 3 WEEKS
     Route: 058
  3. XOLAIR [Suspect]
     Active Substance: OMALIZUMAB
     Dosage: 300 MG, EVERY 4 WEEKS
     Route: 058
     Dates: start: 20200828
  4. XOLAIR [Suspect]
     Active Substance: OMALIZUMAB
     Dosage: 300 MG, EVERY 4 WEEKS
     Route: 058
     Dates: start: 20210430
  5. XOLAIR [Suspect]
     Active Substance: OMALIZUMAB
     Dosage: 300 MG, EVERY 4 WEEKS
     Route: 058
  6. XOLAIR [Suspect]
     Active Substance: OMALIZUMAB
     Dosage: 300 MG, EVERY 4 WEEKS
     Route: 058
  7. XOLAIR [Suspect]
     Active Substance: OMALIZUMAB
     Dosage: 300 MG, EVERY 4 WEEKS
     Route: 058
     Dates: start: 20220114
  8. XOLAIR [Suspect]
     Active Substance: OMALIZUMAB
     Dosage: 300 MG, EVERY 3 WEEKS
     Route: 058
     Dates: start: 20220218
  9. XOLAIR [Suspect]
     Active Substance: OMALIZUMAB
     Dosage: UNK
     Route: 058
     Dates: start: 20220314
  10. XOLAIR [Suspect]
     Active Substance: OMALIZUMAB
     Dosage: UNK
     Route: 065
     Dates: start: 20220311
  11. XOLAIR [Suspect]
     Active Substance: OMALIZUMAB
     Dosage: 300 MG, EVERY 3 WEEKS
     Route: 058
     Dates: start: 20220418
  12. XOLAIR [Suspect]
     Active Substance: OMALIZUMAB
     Dosage: UNK
     Route: 065
     Dates: start: 20220520
  13. XOLAIR [Suspect]
     Active Substance: OMALIZUMAB
     Dosage: 300 MG, EVERY 4 WEEKS
     Route: 065
  14. XOLAIR [Suspect]
     Active Substance: OMALIZUMAB
     Dosage: 300 MG, EVERY 4 WEEKS
     Route: 058
     Dates: start: 20220630
  15. MONTELUKAST [Suspect]
     Active Substance: MONTELUKAST SODIUM
     Indication: Chronic spontaneous urticaria
     Dosage: UNK, QD
     Route: 048
  16. LIDOCAINE [Suspect]
     Active Substance: LIDOCAINE
     Indication: Product used for unknown indication
     Dosage: UNK
     Route: 065
  17. BILASTINE [Concomitant]
     Active Substance: BILASTINE
     Indication: Product used for unknown indication
     Dosage: UNK, BID
     Route: 048
  18. CROMOLYN SODIUM [Concomitant]
     Active Substance: CROMOLYN SODIUM
     Indication: Product used for unknown indication
     Dosage: UNK, QID
     Route: 048
  19. FAMOTIDINE [Concomitant]
     Active Substance: FAMOTIDINE
     Indication: Product used for unknown indication
     Dosage: UNK, BID
     Route: 048
  20. HYDROXYCHLOROQUINE [Concomitant]
     Active Substance: HYDROXYCHLOROQUINE
     Indication: Product used for unknown indication
     Dosage: UNK , BID
     Route: 048
     Dates: start: 202105

REACTIONS (27)
  - Anaphylactic reaction [Not Recovered/Not Resolved]
  - Anaphylactic reaction [Recovered/Resolved]
  - Anaphylactic reaction [Unknown]
  - Mast cell activation syndrome [Unknown]
  - Flushing [Recovered/Resolved]
  - Headache [Recovered/Resolved]
  - Presyncope [Recovered/Resolved]
  - Dysphagia [Recovered/Resolved]
  - Urticaria [Not Recovered/Not Resolved]
  - Throat tightness [Unknown]
  - Drug intolerance [Unknown]
  - Malaise [Unknown]
  - Fatigue [Unknown]
  - Feeling abnormal [Unknown]
  - Illness [Unknown]
  - Flushing [Unknown]
  - Erythema [Unknown]
  - Hypertension [Unknown]
  - Migraine [Unknown]
  - Condition aggravated [Unknown]
  - Headache [Unknown]
  - Pharyngeal swelling [Unknown]
  - Hypersensitivity [Unknown]
  - Drug hypersensitivity [Unknown]
  - Inappropriate schedule of product administration [Unknown]
  - Product dose omission issue [Unknown]
  - Treatment failure [Unknown]

NARRATIVE: CASE EVENT DATE: 20200820
